FAERS Safety Report 14360912 (Version 1)
Quarter: 2018Q1

REPORT INFORMATION
  Report Type: Report from Study
  Country: FR (occurrence: FR)
  Receive Date: 20180107
  Receipt Date: 20180107
  Transmission Date: 20180509
  Serious: Yes (Hospitalization)
  Sender: FDA-Public Use
  Company Number: FR-SHIRE-FR201729965

PATIENT

DRUGS (7)
  1. CYCLOPHOSPHAMIDE. [Suspect]
     Active Substance: CYCLOPHOSPHAMIDE
     Indication: ACUTE LYMPHOCYTIC LEUKAEMIA
     Dosage: 820 MG, UNK
     Route: 042
     Dates: start: 20171105, end: 20171105
  2. PEGASPARGASE [Suspect]
     Active Substance: PEGASPARGASE
     Indication: ACUTE LYMPHOCYTIC LEUKAEMIA
     Dosage: 1800 IU, 1X/DAY:QD
     Route: 042
     Dates: start: 20171009, end: 20171009
  3. CYTARABINE. [Suspect]
     Active Substance: CYTARABINE
     Dosage: 62.5 MG, 1X/DAY:QD
     Route: 042
     Dates: start: 20171114
  4. METHOTREXATE. [Suspect]
     Active Substance: METHOTREXATE
     Indication: ACUTE LYMPHOCYTIC LEUKAEMIA
     Dosage: 12 MG, 1X/DAY:QD
     Route: 037
     Dates: start: 20171107, end: 20171107
  5. CYTARABINE. [Suspect]
     Active Substance: CYTARABINE
     Indication: ACUTE LYMPHOCYTIC LEUKAEMIA
     Dosage: 62.5 MG, 1X/DAY:QD
     Route: 042
     Dates: start: 20171107, end: 20171110
  6. THIOGUANINE [Suspect]
     Active Substance: THIOGUANINE
     Indication: ACUTE LYMPHOCYTIC LEUKAEMIA
     Dosage: 60 MG, 1X/DAY:QD
     Route: 048
     Dates: start: 20171105
  7. HEPARIN [Concomitant]
     Active Substance: HEPARIN SODIUM
     Indication: INTRACARDIAC THROMBUS

REACTIONS (1)
  - Venoocclusive disease [Not Recovered/Not Resolved]

NARRATIVE: CASE EVENT DATE: 20171114
